FAERS Safety Report 23808544 (Version 2)
Quarter: 2024Q2

REPORT INFORMATION
  Report Type: Report from Study
  Country: US (occurrence: US)
  Receive Date: 20240502
  Receipt Date: 20240603
  Transmission Date: 20240716
  Serious: Yes (Death, Other)
  Sender: FDA-Public Use
  Company Number: US-BAYER-2024A064219

PATIENT
  Age: 81 Year
  Sex: Male

DRUGS (1)
  1. KERENDIA [Suspect]
     Active Substance: FINERENONE
     Indication: Cardiac failure

REACTIONS (2)
  - Sepsis syndrome [Fatal]
  - Renal failure [None]

NARRATIVE: CASE EVENT DATE: 20240314
